FAERS Safety Report 9707802 (Version 1)
Quarter: 2013Q4

REPORT INFORMATION
  Report Type: Spontaneous
  Country: DE (occurrence: DE)
  Receive Date: 20131125
  Receipt Date: 20131125
  Transmission Date: 20140711
  Serious: Yes (Hospitalization)
  Sender: FDA-Public Use
  Company Number: DE-009507513-1311DEU009439

PATIENT
  Age: 56 Year
  Sex: Male

DRUGS (3)
  1. REMERGIL [Suspect]
     Indication: DEPRESSION
     Dosage: 15 MG, QD
     Route: 048
     Dates: start: 20130820, end: 20130828
  2. REMERGIL [Suspect]
     Dosage: 30 MG, QD
     Route: 048
     Dates: start: 20130829, end: 20130904
  3. REMERGIL [Suspect]
     Dosage: 15 MG, QD
     Route: 048
     Dates: start: 20130905

REACTIONS (1)
  - Dermatitis allergic [Recovering/Resolving]
